FAERS Safety Report 11714826 (Version 1)
Quarter: 2015Q4

REPORT INFORMATION
  Report Type: Spontaneous
  Country: US (occurrence: US)
  Receive Date: 20151109
  Receipt Date: 20151109
  Transmission Date: 20160304
  Serious: Yes (Hospitalization, Other)
  Sender: FDA-Public Use
  Company Number: US-CEDAR PHARMACEUTICALS-2015CDR00010

PATIENT
  Age: 41 Year
  Sex: Female

DRUGS (3)
  1. UNSPECIFIED OVER-THE-COUNTER ANTIHISTAMINE [Concomitant]
     Indication: SEASONAL ALLERGY
     Dosage: UNK, AS NEEDED
  2. METHIMAZOLE. [Suspect]
     Active Substance: METHIMAZOLE
     Indication: BASEDOW^S DISEASE
     Dosage: 20 MG, 1X/DAY
  3. PROPRANOLOL [Concomitant]
     Active Substance: PROPRANOLOL\PROPRANOLOL HYDROCHLORIDE

REACTIONS (14)
  - Agranulocytosis [Recovered/Resolved]
  - Liver disorder [Recovered/Resolved]
  - Pleural effusion [Recovered/Resolved]
  - Disease recurrence [None]
  - Bone marrow failure [None]
  - Basedow^s disease [None]
  - Left ventricular dysfunction [None]
  - Opportunistic infection [None]
  - Febrile neutropenia [Recovered/Resolved]
  - Platelet count decreased [Recovered/Resolved]
  - Peliosis hepatis [None]
  - Cat scratch disease [Recovered/Resolved]
  - Hepatomegaly [Recovered/Resolved]
  - Atelectasis [Recovered/Resolved]
